FAERS Safety Report 16867984 (Version 1)
Quarter: 2019Q3

REPORT INFORMATION
  Report Type: Spontaneous
  Country: DE (occurrence: DE)
  Receive Date: 20190930
  Receipt Date: 20190930
  Transmission Date: 20191005
  Serious: Yes (Other)
  Sender: FDA-Public Use
  Company Number: DE-DENTSPLY-2019SCDP000524

PATIENT
  Sex: Male

DRUGS (2)
  1. OFLOXA-VISION SINE [Concomitant]
     Indication: PRODUCT USED FOR UNKNOWN INDICATION
     Dosage: UNK
     Route: 065
  2. XYLOCAINE [Suspect]
     Active Substance: LIDOCAINE HYDROCHLORIDE
     Indication: EYE PAIN
     Dosage: UNK, GEL
     Route: 065
     Dates: start: 20190822

REACTIONS (4)
  - Blindness [Unknown]
  - Accidental exposure to product [Unknown]
  - Product dispensing error [Unknown]
  - Visual impairment [Unknown]
